FAERS Safety Report 19674332 (Version 1)
Quarter: 2021Q3

REPORT INFORMATION
  Report Type: Spontaneous
  Country: PT (occurrence: PT)
  Receive Date: 20210809
  Receipt Date: 20210809
  Transmission Date: 20211014
  Serious: Yes (Hospitalization, Other)
  Sender: FDA-Public Use
  Company Number: PT-AUROBINDO-AUR-APL-2021-033313

PATIENT
  Age: 52 Year
  Sex: Female

DRUGS (1)
  1. AMOXICILLIN. [Suspect]
     Active Substance: AMOXICILLIN
     Indication: TOOTH INFECTION
     Dosage: 1 GRAM (ONE TOTAL)
     Route: 065

REACTIONS (8)
  - Rectal haemorrhage [Recovered/Resolved]
  - Metabolic acidosis [Unknown]
  - Anaphylactic shock [Unknown]
  - Intestinal ischaemia [Unknown]
  - Leukocytosis [Unknown]
  - Acute kidney injury [Unknown]
  - Drug hypersensitivity [Unknown]
  - Hypotension [Recovered/Resolved]
